FAERS Safety Report 24640302 (Version 2)
Quarter: 2024Q4

REPORT INFORMATION
  Report Type: Report from Study
  Country: JP (occurrence: JP)
  Receive Date: 20241120
  Receipt Date: 20241120
  Transmission Date: 20250115
  Serious: Yes (Hospitalization, Other)
  Sender: ALEXION PHARMACEUTICALS
  Company Number: JP-ASTRAZENECA-240115432_032420_P_1

PATIENT
  Age: 76 Year
  Weight: 72 kg

DRUGS (12)
  1. TEZEPELUMAB [Suspect]
     Active Substance: TEZEPELUMAB
     Dosage: UNK UNK
  2. TEZEPELUMAB [Suspect]
     Active Substance: TEZEPELUMAB
     Dosage: UNK UNK
  3. TEZEPELUMAB [Suspect]
     Active Substance: TEZEPELUMAB
     Dosage: UNK UNK
  4. TEZEPELUMAB [Suspect]
     Active Substance: TEZEPELUMAB
     Dosage: UNK UNK
  5. UNSPECIFIED INGREDIENT [Suspect]
     Active Substance: UNSPECIFIED INGREDIENT
     Indication: Asthma
     Dosage: DOSE UNKNOWN
     Route: 065
  6. UNSPECIFIED INGREDIENT [Suspect]
     Active Substance: UNSPECIFIED INGREDIENT
     Dosage: DOSE UNKNOWN
  7. UNSPECIFIED INGREDIENT [Suspect]
     Active Substance: UNSPECIFIED INGREDIENT
     Dosage: DOSE UNKNOWN
     Route: 065
  8. UNSPECIFIED INGREDIENT [Suspect]
     Active Substance: UNSPECIFIED INGREDIENT
     Dosage: DOSE UNKNOWN
  9. OTHER ANTIALLERGIC AGENTS [Concomitant]
     Indication: Asthma
     Dosage: DOSE UNKNOWN
     Route: 065
  10. OTHER ANTIALLERGIC AGENTS [Concomitant]
     Dosage: DOSE UNKNOWN
  11. OTHER ANTIALLERGIC AGENTS [Concomitant]
     Dosage: DOSE UNKNOWN
     Route: 065
  12. OTHER ANTIALLERGIC AGENTS [Concomitant]
     Dosage: DOSE UNKNOWN

REACTIONS (4)
  - Tremor [Unknown]
  - Hallucination [Unknown]
  - Nausea [Unknown]
  - Hypotension [Unknown]
